FAERS Safety Report 7900806-8 (Version None)
Quarter: 2011Q4

REPORT INFORMATION
  Report Type: 
  Country: None (occurrence: None)
  Receive Date: 20111108
  Receipt Date: 20111026
  Transmission Date: 20120403
  Serious: Yes (Hospitalization, Other)
  Sender: FDA-Public Use
  Company Number: US-CELGENEUS-163-21660-11101142

PATIENT
  Sex: Female

DRUGS (15)
  1. ABRAXANE [Suspect]
     Dosage: 150 MILLIGRAM
     Route: 041
     Dates: start: 20110901, end: 20110915
  2. PROTONIX [Concomitant]
     Dosage: 40 MILLIGRAM
     Route: 065
  3. METOPROLOL [Concomitant]
     Dosage: 25 MILLIGRAM
     Route: 065
  4. PAROXETINE HCL [Concomitant]
     Dosage: 20 MILLIGRAM
     Route: 065
  5. DIGOXIN [Concomitant]
     Dosage: .125 MILLIGRAM
     Route: 048
  6. FENTANYL [Concomitant]
     Route: 065
  7. ABRAXANE [Suspect]
     Dosage: 150 MILLIGRAM
     Route: 041
     Dates: start: 20111017, end: 20111025
  8. BETAPACE [Concomitant]
     Dosage: 120 MILLIGRAM
     Route: 048
  9. DULCOLAX [Concomitant]
     Dosage: 10 MILLIGRAM
     Route: 048
  10. DECADRON [Concomitant]
     Dosage: 4 MILLIGRAM
     Route: 048
  11. KEPPRA [Concomitant]
     Dosage: 500 MILLIGRAM
     Route: 048
  12. SENNA [Concomitant]
     Dosage: 2 TABLET
     Route: 048
  13. FOLIC ACID [Concomitant]
     Dosage: 400 MILLIGRAM
     Route: 065
  14. OXYCONTIN [Concomitant]
     Dosage: 40 MILLIGRAM
     Route: 065
  15. LEVOTHYROXINE SODIUM [Concomitant]
     Dosage: 88 MICROGRAM
     Route: 048

REACTIONS (2)
  - REGURGITATION [None]
  - HYPOPHAGIA [None]
